FAERS Safety Report 16130449 (Version 1)
Quarter: 2019Q1

REPORT INFORMATION
  Report Type: Spontaneous
  Country: CA (occurrence: CA)
  Receive Date: 20190328
  Receipt Date: 20190328
  Transmission Date: 20190418
  Serious: Yes (Hospitalization, Other)
  Sender: FDA-Public Use
  Company Number: CA-009507513-1903CAN007906

PATIENT
  Sex: Female

DRUGS (5)
  1. FOSAMAX [Suspect]
     Active Substance: ALENDRONATE SODIUM
     Indication: OSTEOPOROSIS POSTMENOPAUSAL
     Dosage: 10 MG DAILY
     Route: 048
     Dates: start: 20010201, end: 200210
  2. FOSAMAX [Suspect]
     Active Substance: ALENDRONATE SODIUM
     Indication: OSTEOPOROSIS POSTMENOPAUSAL
     Dosage: 70MG WEEKLY
     Route: 048
     Dates: start: 20030214, end: 200506
  3. ALENDRONATE SODIUM. [Suspect]
     Active Substance: ALENDRONATE SODIUM
     Indication: OSTEOPOROSIS POSTMENOPAUSAL
     Dosage: 70MGS WEEKLY
     Route: 048
     Dates: start: 20090330, end: 201003
  4. ALENDRONATE SODIUM. [Suspect]
     Active Substance: ALENDRONATE SODIUM
     Indication: OSTEOPOROSIS POSTMENOPAUSAL
     Dosage: UNK
     Route: 048
     Dates: start: 20100329, end: 20140106
  5. ALENDRONATE SODIUM. [Suspect]
     Active Substance: ALENDRONATE SODIUM
     Indication: OSTEOPOROSIS POSTMENOPAUSAL
     Dosage: 70MGS WEEKLY
     Route: 048
     Dates: start: 20050630, end: 200803

REACTIONS (13)
  - Bursitis [Unknown]
  - Fracture delayed union [Unknown]
  - Cellulitis [Unknown]
  - Tachycardia [Unknown]
  - Gastrooesophageal reflux disease [Unknown]
  - Dermatitis contact [Unknown]
  - Haematoma [Unknown]
  - Anaemia postoperative [Unknown]
  - Joint stiffness [Unknown]
  - Hypertension [Unknown]
  - Neck pain [Unknown]
  - Femur fracture [Not Recovered/Not Resolved]
  - Cardiac murmur [Unknown]

NARRATIVE: CASE EVENT DATE: 2013
